FAERS Safety Report 5306452-7 (Version None)
Quarter: 2007Q2

REPORT INFORMATION
  Report Type: 
  Country: None (occurrence: None)
  Receive Date: 20070417
  Receipt Date: 20070402
  Transmission Date: 20071010
  Serious: Yes (Other)
  Sender: FDA-Public Use
  Company Number: S07-FRA-01603-01

PATIENT
  Age: 83 Year
  Sex: Female

DRUGS (5)
  1. EBIXA (MEMANTINE HYDROCHLORIDE) [Suspect]
     Dates: start: 20070101, end: 20070201
  2. PREVISCAN (FLUINDIONE) [Suspect]
     Dates: end: 20070201
  3. RAMIPRIL [Suspect]
     Dates: end: 20070201
  4. PAROXETINE HCL [Suspect]
     Dates: end: 20070201
  5. CLASTOBAN (CLODRONATE DISODIUM) [Suspect]
     Dates: end: 20070201

REACTIONS (1)
  - CYTOLYTIC HEPATITIS [None]
